FAERS Safety Report 13796995 (Version 2)
Quarter: 2017Q3

REPORT INFORMATION
  Report Type: Report from Study
  Country: US (occurrence: US)
  Receive Date: 20170726
  Receipt Date: 20170821
  Transmission Date: 20171127
  Serious: Yes (Hospitalization, Other)
  Sender: FDA-Public Use
  Company Number: PHEH2017US022818

PATIENT
  Age: 71 Year
  Sex: Male

DRUGS (1)
  1. SANDOSTATIN LAR DEPOT [Suspect]
     Active Substance: OCTREOTIDE ACETATE
     Indication: PRODUCT USED FOR UNKNOWN INDICATION
     Dosage: UNK
     Route: 065
     Dates: start: 20161221

REACTIONS (5)
  - Metastasis [Unknown]
  - Renal failure [Not Recovered/Not Resolved]
  - Metastatic carcinoid tumour [Unknown]
  - Cachexia [Unknown]
  - Ascites [Unknown]

NARRATIVE: CASE EVENT DATE: 20170708
